FAERS Safety Report 8586781-4 (Version None)
Quarter: 2012Q3

REPORT INFORMATION
  Report Type: 
  Country: None (occurrence: None)
  Receive Date: 20120810
  Receipt Date: 20120804
  Transmission Date: 20120928
  Serious: Yes (Hospitalization)
  Sender: FDA-Public Use
  Company Number: JP-ELI_LILLY_AND_COMPANY-JP201208001678

PATIENT
  Age: 75 Year
  Sex: Female

DRUGS (3)
  1. FORTEO [Suspect]
     Indication: OSTEOPOROSIS
     Dosage: UNK
     Route: 058
     Dates: start: 20120401, end: 20120401
  2. ALFACALCIDOL [Concomitant]
     Route: 048
  3. FORTEO [Suspect]
     Dosage: UNK
     Route: 058
     Dates: start: 20120706

REACTIONS (2)
  - FEMUR FRACTURE [None]
  - FATIGUE [None]
